FAERS Safety Report 11443711 (Version 1)
Quarter: 2015Q3

REPORT INFORMATION
  Report Type: Spontaneous
  Country: DE (occurrence: DE)
  Receive Date: 20150901
  Receipt Date: 20150901
  Transmission Date: 20151125
  Serious: Yes (Hospitalization, Other)
  Sender: FDA-Public Use
  Company Number: DE-JAZZ-2015-DE-012833

PATIENT
  Age: 30 Year
  Sex: Male

DRUGS (1)
  1. XYREM [Suspect]
     Active Substance: SODIUM OXYBATE
     Indication: PRODUCT USED FOR UNKNOWN INDICATION
     Dosage: (STRENGTH 500 MG/ML SOLUTION) 160 ML OVER A PERIOD OF 2 HOURS, TOTAL: 80,000MG
     Route: 065
     Dates: start: 201508

REACTIONS (6)
  - Sluggishness [Unknown]
  - Intentional overdose [Unknown]
  - Diastolic hypertension [Unknown]
  - Tachycardia [Unknown]
  - Systolic hypertension [Unknown]
  - Drug abuse [Unknown]

NARRATIVE: CASE EVENT DATE: 201508
